FAERS Safety Report 5727984-3 (Version None)
Quarter: 2008Q2

REPORT INFORMATION
  Report Type: 
  Country: None (occurrence: None)
  Receive Date: 20080505
  Receipt Date: 20080430
  Transmission Date: 20081010
  Serious: Yes (Hospitalization)
  Sender: FDA-Public Use
  Company Number: US-BOEHRINGER INGELHEIM GMBH, GERMANY-2008-BP-06784BP

PATIENT
  Sex: Female

DRUGS (5)
  1. SPIRIVA [Suspect]
     Indication: CHRONIC OBSTRUCTIVE PULMONARY DISEASE
     Route: 055
     Dates: start: 20070601
  2. ADVAIR HFA [Concomitant]
  3. DILTIAZEM [Concomitant]
  4. FOSAMAX [Concomitant]
  5. SIMVASTATIN [Concomitant]

REACTIONS (1)
  - TACHYCARDIA [None]
